FAERS Safety Report 4542273-0 (Version None)
Quarter: 2004Q4

REPORT INFORMATION
  Report Type: 
  Country: None (occurrence: None)
  Receive Date: 20041227
  Receipt Date: 20041213
  Transmission Date: 20050328
  Serious: Yes (Death, Other)
  Sender: FDA-Public Use
  Company Number: 2004112322

PATIENT
  Age: 63 Year
  Sex: Male

DRUGS (3)
  1. GEODON [Suspect]
     Indication: MENTAL DISORDER DUE TO A GENERAL MEDICAL CONDITION
     Dosage: 80 MG (40 MG, 2 IN 1 D), ORAL
     Route: 048
     Dates: end: 20041201
  2. ZOLOFT [Suspect]
     Indication: MENTAL DISORDER DUE TO A GENERAL MEDICAL CONDITION
     Dosage: 200 MG, ORAL
     Route: 048
     Dates: end: 20041201
  3. REMERON [Concomitant]

REACTIONS (3)
  - ANXIETY [None]
  - ELECTROCARDIOGRAM QT CORRECTED INTERVAL PROLONGED [None]
  - NEUROLEPTIC MALIGNANT SYNDROME [None]
